FAERS Safety Report 10005079 (Version 2)
Quarter: 2014Q2

REPORT INFORMATION
  Report Type: Spontaneous
  Country: US (occurrence: US)
  Receive Date: 20140312
  Receipt Date: 20140429
  Transmission Date: 20141212
  Serious: Yes (Hospitalization, Other)
  Sender: FDA-Public Use
  Company Number: US-B.I. PHARMACEUTICALS,INC./RIDGEFIELD-2014-BI-10427BP

PATIENT
  Age: 96 Year
  Sex: Female
  Weight: 66 kg

DRUGS (2)
  1. PRADAXA [Suspect]
     Indication: ATRIAL FIBRILLATION
     Dosage: 300 MG
     Route: 048
     Dates: start: 20140304, end: 20140305
  2. PRADAXA [Suspect]
     Indication: TRANSIENT ISCHAEMIC ATTACK

REACTIONS (2)
  - Haematochezia [Recovered/Resolved]
  - Urinary retention [Recovered/Resolved with Sequelae]
